FAERS Safety Report 12389883 (Version 1)
Quarter: 2016Q2

REPORT INFORMATION
  Report Type: Spontaneous
  Country: US (occurrence: US)
  Receive Date: 20160520
  Receipt Date: 20160520
  Transmission Date: 20160815
  Serious: No
  Sender: FDA-Public Use
  Company Number: US-BAYER-2016-092183

PATIENT
  Age: 71 Year
  Sex: Female
  Weight: 54.42 kg

DRUGS (6)
  1. ZAPONEX [Concomitant]
     Active Substance: CLOZAPINE
  2. SYNTHROID [Concomitant]
     Active Substance: LEVOTHYROXINE SODIUM
  3. CLARITIN [Suspect]
     Active Substance: LORATADINE
     Indication: UPPER-AIRWAY COUGH SYNDROME
     Dosage: 1 DF, QD
     Dates: start: 20160510
  4. INSULIN [Concomitant]
     Active Substance: INSULIN NOS
     Dosage: UNK
  5. PRILOSEC [Concomitant]
     Active Substance: OMEPRAZOLE MAGNESIUM
  6. DIGEST [Concomitant]
     Dosage: UNK

REACTIONS (4)
  - Extra dose administered [None]
  - Dizziness [Recovered/Resolved]
  - Blood glucose increased [None]
  - Off label use [None]

NARRATIVE: CASE EVENT DATE: 20160510
